FAERS Safety Report 10516417 (Version 5)
Quarter: 2015Q2

REPORT INFORMATION
  Report Type: Spontaneous
  Country: US (occurrence: US)
  Receive Date: 20141014
  Receipt Date: 20150629
  Transmission Date: 20150821
  Serious: Yes (Hospitalization, Other)
  Sender: FDA-Public Use
  Company Number: US-BAYER-2014-149368

PATIENT
  Age: 32 Year
  Sex: Female
  Weight: 73 kg

DRUGS (2)
  1. MIRENA [Suspect]
     Active Substance: LEVONORGESTREL
     Indication: CONTRACEPTION
     Dosage: 20 MCG/24HR, CONT
     Route: 015
     Dates: start: 20130515, end: 20140618
  2. MIRENA [Suspect]
     Active Substance: LEVONORGESTREL
     Indication: CONTRACEPTION
     Dosage: 20 MCG/24HR, CONT
     Route: 015
     Dates: start: 200808, end: 201204

REACTIONS (22)
  - Abdominal pain lower [None]
  - General physical health deterioration [None]
  - Thrombosis [None]
  - Genital haemorrhage [None]
  - Injury [None]
  - Scar [None]
  - Device issue [None]
  - Sexual inhibition [None]
  - Embedded device [None]
  - Drug ineffective [None]
  - Abdominal pain upper [None]
  - Device difficult to use [None]
  - Pregnancy with contraceptive device [None]
  - Medical device discomfort [None]
  - Complication of device removal [None]
  - Medical device pain [None]
  - Abortion incomplete [None]
  - Device breakage [None]
  - Tenderness [None]
  - Uterine perforation [None]
  - Depression [None]
  - Anxiety [None]

NARRATIVE: CASE EVENT DATE: 2013
